FAERS Safety Report 5151454-7 (Version None)
Quarter: 2006Q4

REPORT INFORMATION
  Report Type: 
  Country: None (occurrence: None)
  Receive Date: 20061115
  Receipt Date: 20061102
  Transmission Date: 20070319
  Serious: Yes (Other)
  Sender: FDA-Public Use
  Company Number: GB-ELI_LILLY_AND_COMPANY-GB200611000347

PATIENT
  Age: 20 Year
  Sex: Female

DRUGS (3)
  1. FLUOXETINE [Suspect]
     Indication: DEPRESSION
     Dosage: 20 MG, UNK
     Dates: start: 20030601
  2. FLUOXETINE [Suspect]
     Dosage: 30 MG, EACH MORNING
  3. MIRTAZAPINE [Concomitant]
     Dosage: 30 MG, EACH EVENING

REACTIONS (8)
  - AGGRESSION [None]
  - CHILD NEGLECT [None]
  - EMOTIONAL DISORDER [None]
  - FLAT AFFECT [None]
  - IMPULSIVE BEHAVIOUR [None]
  - PHYSICAL ASSAULT [None]
  - THEFT [None]
  - THERAPEUTIC RESPONSE DECREASED [None]
